FAERS Safety Report 6291554-1 (Version None)
Quarter: 2009Q3

REPORT INFORMATION
  Report Type: 
  Country: None (occurrence: None)
  Receive Date: 20090730
  Receipt Date: 20090727
  Transmission Date: 20100115
  Serious: Yes (Death)
  Sender: FDA-Public Use
  Company Number: PHHY2009IE27670

PATIENT
  Sex: Female

DRUGS (3)
  1. CLOZARIL [Suspect]
     Indication: SCHIZOPHRENIA
     Dosage: UNK
     Dates: start: 20090331
  2. CLOZARIL [Suspect]
     Dosage: 150-220 MG DAILY
     Dates: start: 20090409
  3. HYOSCINE [Concomitant]
     Indication: SALIVARY HYPERSECRETION
     Dosage: 0.5 MG, PRN
     Dates: start: 20090401

REACTIONS (1)
  - COMPLETED SUICIDE [None]
